FAERS Safety Report 24941241 (Version 1)
Quarter: 2025Q1

REPORT INFORMATION
  Report Type: Spontaneous
  Country: IT (occurrence: IT)
  Receive Date: 20250207
  Receipt Date: 20250207
  Transmission Date: 20250408
  Serious: Yes (Death, Hospitalization, Other)
  Sender: RANBAXY
  Company Number: IT-SUN PHARMACEUTICAL INDUSTRIES LTD-2025R1-492317

PATIENT
  Age: 38 Year
  Sex: Female
  Weight: 85.6 kg

DRUGS (2)
  1. CHLORPROMAZINE [Suspect]
     Active Substance: CHLORPROMAZINE
     Indication: Antipsychotic therapy
     Route: 065
  2. PERICIAZINE [Suspect]
     Active Substance: PERICIAZINE
     Indication: Antipsychotic therapy
     Route: 065

REACTIONS (3)
  - Choking [Fatal]
  - Dysphagia [Fatal]
  - Ischaemic stroke [Fatal]
